FAERS Safety Report 10247406 (Version 3)
Quarter: 2014Q3

REPORT INFORMATION
  Report Type: Report from Study
  Country: US (occurrence: US)
  Receive Date: 20140619
  Receipt Date: 20140707
  Transmission Date: 20150326
  Serious: Yes (Other)
  Sender: FDA-Public Use
  Company Number: US-ACTELION-A-US2013-80495

PATIENT
  Age: 72 Year
  Sex: Female

DRUGS (3)
  1. AMIODARONE [Concomitant]
     Active Substance: AMIODARONE
  2. COUMADIN [Concomitant]
     Active Substance: WARFARIN SODIUM
  3. TRACLEER [Suspect]
     Active Substance: BOSENTAN\BOSENTAN MONOHYDRATE
     Indication: PULMONARY ARTERIAL HYPERTENSION
     Dosage: UNK
     Route: 048

REACTIONS (13)
  - Oedema [Unknown]
  - Headache [Unknown]
  - Cardiac pacemaker replacement [Unknown]
  - Atrioventricular block complete [Unknown]
  - Fatigue [Unknown]
  - Dyspnoea [Unknown]
  - Atrial fibrillation [Unknown]
  - Nervousness [Unknown]
  - Chest pain [Unknown]
  - Nocturnal dyspnoea [Unknown]
  - Exercise tolerance decreased [Unknown]
  - Chest discomfort [Unknown]
  - Dizziness [Unknown]

NARRATIVE: CASE EVENT DATE: 20130221
